FAERS Safety Report 14355518 (Version 1)
Quarter: 2018Q1

REPORT INFORMATION
  Report Type: Spontaneous
  Country: BE (occurrence: BE)
  Receive Date: 20180105
  Receipt Date: 20180105
  Transmission Date: 20180509
  Serious: Yes (Death, Life-Threatening, Disabling, Congenital Anomaly, Other)
  Sender: FDA-Public Use
  Company Number: BE-SA-2018SA003378

PATIENT
  Sex: Male
  Weight: .3 kg

DRUGS (12)
  1. AVAMYS [Suspect]
     Active Substance: FLUTICASONE FUROATE
     Dosage: FORM: NASAL SPRAY
     Route: 064
  2. XYZALL [Suspect]
     Active Substance: LEVOCETIRIZINE DIHYDROCHLORIDE
     Route: 064
  3. FLUTICASONE FUROATE [Suspect]
     Active Substance: FLUTICASONE FUROATE
     Dosage: FORM: INHALATION POWDER
     Route: 064
  4. D-CURE [Suspect]
     Active Substance: CHOLECALCIFEROL
     Route: 064
  5. SIPRALEXA [Suspect]
     Active Substance: ESCITALOPRAM OXALATE
     Route: 064
  6. SERETIDE [Suspect]
     Active Substance: FLUTICASONE PROPIONATE\SALMETEROL XINAFOATE
     Route: 064
  7. MEPOLIZUMAB [Suspect]
     Active Substance: MEPOLIZUMAB
     Route: 064
  8. FLIXOTIDE [Suspect]
     Active Substance: FLUTICASONE PROPIONATE
     Route: 064
  9. VENTOLIN [Suspect]
     Active Substance: ALBUTEROL SULFATE
     Route: 064
  10. XANTHIUM (THEOPHYLLINE) [Suspect]
     Active Substance: THEOPHYLLINE
     Route: 064
  11. VILANTEROL TRIFENATATE [Suspect]
     Active Substance: VILANTEROL TRIFENATATE
     Dosage: FORM: INHALATION POWDER
     Route: 064
  12. PANTOMED (PANTOPRAZOLE SODIUM) [Suspect]
     Active Substance: PANTOPRAZOLE SODIUM
     Route: 064

REACTIONS (3)
  - Foetal malformation [Fatal]
  - Trisomy 18 [Fatal]
  - Foetal exposure during pregnancy [Fatal]
